FAERS Safety Report 20543945 (Version 1)
Quarter: 2022Q1

REPORT INFORMATION
  Report Type: Report from Study
  Country: US (occurrence: None)
  Receive Date: 20220303
  Receipt Date: 20220303
  Transmission Date: 20220423
  Serious: Yes (Hospitalization)
  Sender: FDA-Public Use
  Company Number: US-ROCHE-3031084

PATIENT
  Age: 28 Year
  Sex: Male
  Weight: 60.6 kg

DRUGS (6)
  1. PIRFENIDONE [Suspect]
     Active Substance: PIRFENIDONE
     Indication: Bronchiolitis obliterans syndrome
     Route: 048
     Dates: start: 20210317
  2. ZOVIRAX [Concomitant]
     Active Substance: ACYCLOVIR
     Route: 048
  3. ZITHROMAX [Concomitant]
     Active Substance: AZITHROMYCIN DIHYDRATE
     Route: 048
  4. BARICITINIB [Concomitant]
     Active Substance: BARICITINIB
     Route: 048
  5. SYMBICORT [Concomitant]
     Active Substance: BUDESONIDE\FORMOTEROL FUMARATE DIHYDRATE
     Dosage: 160-4.5 MCG/ACTUATION INHALER INHALE 2 PUFFS INTO THE LUNGS
  6. CORTEF [Concomitant]
     Active Substance: HYDROCORTISONE

REACTIONS (1)
  - COVID-19 [Unknown]

NARRATIVE: CASE EVENT DATE: 20220105
